FAERS Safety Report 4814903-7 (Version None)
Quarter: 2005Q4

REPORT INFORMATION
  Report Type: 
  Country: None (occurrence: None)
  Receive Date: 20051028
  Receipt Date: 20051018
  Transmission Date: 20060501
  Serious: Yes (Life-Threatening)
  Sender: FDA-Public Use
  Company Number: IT-ROCHE-421686

PATIENT
  Age: 49 Year
  Sex: Female

DRUGS (6)
  1. CAPECITABINE [Suspect]
     Indication: BREAST CANCER
     Dosage: 3440 MILLIGRAMS.
     Route: 048
     Dates: start: 20050907, end: 20050911
  2. IXABEPILONE [Suspect]
     Indication: BREAST CANCER
     Dosage: 68.8 MILLIGRAMS.
     Route: 042
     Dates: start: 20050907, end: 20050907
  3. URBASON [Concomitant]
     Dates: start: 20050912, end: 20050912
  4. PLASIL [Concomitant]
     Dates: start: 20050912, end: 20050912
  5. ASCORBIC ACID [Concomitant]
     Dates: start: 20050912, end: 20050912
  6. VITAMIN E [Concomitant]
     Dosage: REPORTED AS VITAMIN E WITH COENZYMES.

REACTIONS (4)
  - ANAEMIA [None]
  - FEBRILE NEUTROPENIA [None]
  - MUCOSAL INFLAMMATION [None]
  - PLATELET COUNT DECREASED [None]
